FAERS Safety Report 8007935-1 (Version None)
Quarter: 2011Q4

REPORT INFORMATION
  Report Type: 
  Country: None (occurrence: None)
  Receive Date: 20111227
  Receipt Date: 20111223
  Transmission Date: 20120403
  Serious: Yes (Hospitalization, Other)
  Sender: FDA-Public Use
  Company Number: GB-PFIZER INC-2011283866

PATIENT
  Age: 71 Year
  Sex: Male
  Weight: 105 kg

DRUGS (8)
  1. NOVOLOG MIX 70/30 [Concomitant]
     Dosage: UNK
     Route: 058
     Dates: start: 20110601
  2. ALLOPURINOL [Concomitant]
     Dosage: 300 MG, DAILY
     Route: 048
     Dates: start: 20060101
  3. LISINOPRIL [Concomitant]
     Dosage: 20 MG, DAILY
     Route: 048
  4. MOXONIDINE [Concomitant]
     Dosage: 200 MG, DAILY
     Route: 048
  5. WARFARIN [Concomitant]
  6. LYRICA [Suspect]
     Dosage: 375 MG, UNK
  7. LYRICA [Suspect]
     Indication: DIABETIC NEUROPATHY
     Dosage: 75 MG, UNK
     Route: 048
     Dates: start: 20110613, end: 20111101
  8. LANSOPRAZOLE [Concomitant]
     Dosage: 15 MG, DAILY
     Route: 048
     Dates: start: 20060101

REACTIONS (5)
  - OEDEMA PERIPHERAL [None]
  - ABDOMINAL DISTENSION [None]
  - BLOOD PRESSURE INCREASED [None]
  - BLOOD CREATININE INCREASED [None]
  - WEIGHT INCREASED [None]
